FAERS Safety Report 7624826 (Version 3)
Quarter: 2014Q1

REPORT INFORMATION
  Report Type: Spontaneous
  Country: US (occurrence: US)
  Receive Date: 20101012
  Receipt Date: 20140120
  Transmission Date: 20141002
  Serious: Yes (Hospitalization)
  Sender: FDA-Public Use
  Company Number: US-BAYER-201036256NA

PATIENT
  Age: 30 Year
  Sex: Female
  Weight: 81.63 kg

DRUGS (3)
  1. YAZ [Suspect]
     Indication: CONTRACEPTION
     Dosage: UNK
  2. ALBUTEROL [Concomitant]
     Indication: ASTHMA
     Dosage: UNK
     Dates: start: 2000
  3. ANTIBIOTICS [Concomitant]
     Dosage: UNK
     Dates: start: 2000

REACTIONS (1)
  - Cholelithiasis [Unknown]
